FAERS Safety Report 19146303 (Version 1)
Quarter: 2021Q2

REPORT INFORMATION
  Report Type: Report from Study
  Country: US (occurrence: US)
  Receive Date: 20210416
  Receipt Date: 20210416
  Transmission Date: 20210717
  Serious: Yes (Other)
  Sender: FDA-Public Use
  Company Number: US-BAUSCH-BL-2021-012830

PATIENT
  Age: 57 Year
  Sex: Male
  Weight: 74.7 kg

DRUGS (16)
  1. PRAVACHOL [Concomitant]
     Active Substance: PRAVASTATIN SODIUM
     Indication: PRODUCT USED FOR UNKNOWN INDICATION
     Dosage: AT BEDTIME
     Route: 048
  2. KRISTALOSE [Concomitant]
     Active Substance: LACTULOSE
     Indication: PRODUCT USED FOR UNKNOWN INDICATION
     Dosage: 10G/15ML ORAL SOLUTION; 15ML AS NEEDED
     Route: 048
  3. DESYREL [Concomitant]
     Active Substance: TRAZODONE HYDROCHLORIDE
     Indication: PRODUCT USED FOR UNKNOWN INDICATION
     Route: 048
  4. ZOFRAN [Concomitant]
     Active Substance: ONDANSETRON HYDROCHLORIDE
     Indication: VOMITING
  5. REMERON [Concomitant]
     Active Substance: MIRTAZAPINE
     Indication: PRODUCT USED FOR UNKNOWN INDICATION
     Dosage: AT BEDTIME
     Route: 048
  6. REMERON [Concomitant]
     Active Substance: MIRTAZAPINE
     Route: 048
  7. CREON [Concomitant]
     Active Substance: PANCRELIPASE AMYLASE\PANCRELIPASE LIPASE\PANCRELIPASE PROTEASE
     Indication: PRODUCT USED FOR UNKNOWN INDICATION
     Dosage: 6000UNITS (2 TABLETS) THREE TIMES DAILY
     Route: 048
  8. ATARAX [Concomitant]
     Active Substance: HYDROXYZINE HYDROCHLORIDE
     Indication: PRURITUS
     Dosage: AT BEDTIME AS NEEDED
     Route: 048
     Dates: start: 20201222
  9. ZOFRAN [Concomitant]
     Active Substance: ONDANSETRON HYDROCHLORIDE
     Indication: NAUSEA
     Dosage: EVERY 8 HOURS AS NEEDED
     Route: 048
     Dates: start: 20200420
  10. LASIX [Concomitant]
     Active Substance: FUROSEMIDE
     Indication: PRODUCT USED FOR UNKNOWN INDICATION
     Route: 048
     Dates: start: 20180511
  11. PRILOSEC [Concomitant]
     Active Substance: OMEPRAZOLE MAGNESIUM
     Indication: PRODUCT USED FOR UNKNOWN INDICATION
     Dosage: 20MG DELAYED RELEASE CAPSULE; 20MG DAILY
     Route: 048
  12. XIFAXAN [Suspect]
     Active Substance: RIFAXIMIN
     Indication: HEPATIC ENCEPHALOPATHY
     Route: 048
     Dates: start: 201112
  13. COREG [Concomitant]
     Active Substance: CARVEDILOL
     Indication: PRODUCT USED FOR UNKNOWN INDICATION
     Dosage: WITH MEALS
     Route: 048
  14. LASIX [Concomitant]
     Active Substance: FUROSEMIDE
     Route: 048
  15. IMODIUM A?D [Concomitant]
     Active Substance: LOPERAMIDE HYDROCHLORIDE
     Indication: PRODUCT USED FOR UNKNOWN INDICATION
     Dosage: 2MG 2 TABLETS TWICE DAILY
     Route: 048
     Dates: start: 20210108
  16. DESYREL [Concomitant]
     Active Substance: TRAZODONE HYDROCHLORIDE
     Route: 048

REACTIONS (20)
  - Hepatic cirrhosis [Not Recovered/Not Resolved]
  - Intestinal obstruction [Unknown]
  - Pleural effusion [Unknown]
  - Rib fracture [Unknown]
  - Arteriosclerosis coronary artery [Unknown]
  - Oesophageal carcinoma [Unknown]
  - Oesophageal adenocarcinoma [Unknown]
  - Cholelithiasis [Unknown]
  - Biliary cyst [Unknown]
  - Abdominal pain [Unknown]
  - Symptom recurrence [Not Recovered/Not Resolved]
  - Adenocarcinoma pancreas [Unknown]
  - Hyperlipidaemia [Unknown]
  - Diarrhoea [Recovering/Resolving]
  - Polyp [Unknown]
  - Hypotension [Unknown]
  - Scoliosis [Unknown]
  - Dysphagia [Recovered/Resolved]
  - Cough [Unknown]
  - Inability to afford medication [Unknown]

NARRATIVE: CASE EVENT DATE: 20120308
